FAERS Safety Report 5356492-7 (Version None)
Quarter: 2007Q2

REPORT INFORMATION
  Report Type: 
  Country: None (occurrence: None)
  Receive Date: 20070530
  Receipt Date: 20061213
  Transmission Date: 20071010
  Serious: Yes (Hospitalization)
  Sender: FDA-Public Use
  Company Number: US200608005841

PATIENT
  Age: 44 Year
  Sex: Male
  Weight: 114.3 kg

DRUGS (1)
  1. ZYPREXA [Suspect]

REACTIONS (1)
  - DIABETES MELLITUS [None]
